FAERS Safety Report 12665994 (Version 1)
Quarter: 2016Q3

REPORT INFORMATION
  Report Type: Report from Study
  Country: US (occurrence: US)
  Receive Date: 20160818
  Receipt Date: 20160818
  Transmission Date: 20161109
  Serious: Yes (Hospitalization, Other)
  Sender: FDA-Public Use
  Company Number: US-GILEAD-2016-0225252

PATIENT
  Age: 60 Year
  Sex: Male
  Weight: 98.87 kg

DRUGS (15)
  1. PLAVIX [Concomitant]
     Active Substance: CLOPIDOGREL BISULFATE
  2. HUMALOG [Concomitant]
     Active Substance: INSULIN LISPRO
  3. ZOVIRAX [Concomitant]
     Active Substance: ACYCLOVIR
  4. SOFOSBUVIR [Suspect]
     Active Substance: SOFOSBUVIR
     Indication: HEPATITIS C
     Dosage: 1 UNK, UNK
     Route: 048
     Dates: start: 20160105
  5. RIBAVIRIN. [Concomitant]
     Active Substance: RIBAVIRIN
     Dosage: UNK
     Dates: end: 20160208
  6. LANTUS [Concomitant]
     Active Substance: INSULIN GLARGINE
  7. PROSCAR [Concomitant]
     Active Substance: FINASTERIDE
  8. GLUCOTROL [Concomitant]
     Active Substance: GLIPIZIDE
  9. FLOMAX [Concomitant]
     Active Substance: TAMSULOSIN HYDROCHLORIDE
  10. DACLATASVIR. [Suspect]
     Active Substance: DACLATASVIR
     Indication: HEPATITIS C
     Dosage: 60 MG, UNK
     Route: 048
     Dates: start: 20160105
  11. COREG [Concomitant]
     Active Substance: CARVEDILOL
  12. NEURONTIN [Concomitant]
     Active Substance: GABAPENTIN
  13. WELLBUTRIN [Concomitant]
     Active Substance: BUPROPION HYDROCHLORIDE
  14. IMDUR [Concomitant]
     Active Substance: ISOSORBIDE MONONITRATE
  15. LIPITOR [Concomitant]
     Active Substance: ATORVASTATIN CALCIUM

REACTIONS (1)
  - Angina pectoris [Recovered/Resolved]

NARRATIVE: CASE EVENT DATE: 20160216
